FAERS Safety Report 8538060-9 (Version None)
Quarter: 2012Q3

REPORT INFORMATION
  Report Type: 
  Country: None (occurrence: None)
  Receive Date: 20120725
  Receipt Date: 20120710
  Transmission Date: 20120928
  Serious: Yes (Other)
  Sender: FDA-Public Use
  Company Number: CHPA2012US015357

PATIENT
  Sex: Female

DRUGS (1)
  1. KERI UNKNOWN [Suspect]
     Dosage: UNK, UNK
     Route: 061

REACTIONS (1)
  - DIABETES MELLITUS [None]
